FAERS Safety Report 25020793 (Version 1)
Quarter: 2025Q1

REPORT INFORMATION
  Report Type: Spontaneous
  Country: US (occurrence: US)
  Receive Date: 20250227
  Receipt Date: 20250227
  Transmission Date: 20250409
  Serious: No
  Sender: BIOMARIN
  Company Number: US-SA-2025SA048865

PATIENT

DRUGS (1)
  1. ALDURAZYME [Suspect]
     Active Substance: LARONIDASE
     Indication: Product used for unknown indication
     Dosage: 11.6 MILLIGRAM, QW
     Route: 065

REACTIONS (1)
  - Illness [Unknown]
